FAERS Safety Report 10284534 (Version 3)
Quarter: 2014Q3

REPORT INFORMATION
  Report Type: Report from Study
  Country: US (occurrence: US)
  Receive Date: 20140708
  Receipt Date: 20140902
  Transmission Date: 20150326
  Serious: Yes (Other)
  Sender: FDA-Public Use
  Company Number: US-SA-2014SA063241

PATIENT
  Age: 58 Year
  Sex: Female

DRUGS (1)
  1. AUBAGIO [Suspect]
     Active Substance: TERIFLUNOMIDE
     Indication: MULTIPLE SCLEROSIS
     Route: 048
     Dates: start: 20140311, end: 20140623

REACTIONS (10)
  - Pain in extremity [Unknown]
  - Gait disturbance [Unknown]
  - Stress [Unknown]
  - Cataract [Unknown]
  - Neoplasm [Unknown]
  - Peroneal nerve palsy [Unknown]
  - Sciatica [Unknown]
  - Fall [Unknown]
  - Intervertebral disc degeneration [Unknown]
  - Headache [Unknown]

NARRATIVE: CASE EVENT DATE: 20140528
